FAERS Safety Report 8778677 (Version 1)
Quarter: 2012Q4

REPORT INFORMATION
  Report Type: Report from Study
  Country: FR (occurrence: FR)
  Receive Date: 20120913
  Receipt Date: 20120913
  Transmission Date: 20130627
  Serious: Yes (Hospitalization)
  Sender: FDA-Public Use
  Company Number: FR-ROCHE-1023842

PATIENT
  Age: 78 Year
  Sex: Female

DRUGS (34)
  1. ROACTEMRA [Suspect]
     Indication: RHEUMATOID ARTHRITIS
     Route: 042
     Dates: start: 20101014
  2. ROACTEMRA [Suspect]
     Route: 065
     Dates: start: 20101115
  3. ROACTEMRA [Suspect]
     Route: 065
     Dates: start: 20110325
  4. ROACTEMRA [Suspect]
     Route: 065
     Dates: start: 20110426
  5. ROACTEMRA [Suspect]
     Route: 065
     Dates: start: 20110606
  6. ROACTEMRA [Suspect]
     Route: 065
     Dates: start: 20110707
  7. ROACTEMRA [Suspect]
     Route: 065
     Dates: start: 20110804
  8. ROACTEMRA [Suspect]
     Route: 065
     Dates: start: 20110905
  9. ROACTEMRA [Suspect]
     Dosage: last infusion prior to the event
     Route: 065
     Dates: start: 20101115
  10. ROACTEMRA [Suspect]
     Route: 065
     Dates: start: 20120109
  11. CORTANCYL [Concomitant]
     Route: 065
  12. CORTANCYL [Concomitant]
     Route: 065
  13. CORTANCYL [Concomitant]
     Route: 065
  14. ARAVA [Concomitant]
     Route: 065
     Dates: end: 20110103
  15. ARAVA [Concomitant]
     Route: 065
     Dates: start: 20110426
  16. CALPEROS [Concomitant]
     Route: 065
  17. DIFFU K [Concomitant]
     Route: 065
  18. DIFFU K [Concomitant]
     Route: 065
  19. DIALGIREX [Concomitant]
     Route: 065
  20. ZYMAD [Concomitant]
     Route: 065
  21. VASTAREL [Concomitant]
     Route: 065
  22. EFFERALGAN [Concomitant]
     Route: 065
  23. CALCIDOSE VITAMINE D [Concomitant]
     Route: 065
  24. EUPANTOL [Concomitant]
     Route: 065
  25. OXYCONTIN [Concomitant]
     Route: 065
  26. DAFALGAN CODEINE [Concomitant]
     Route: 065
  27. MOTILIUM-M [Concomitant]
     Route: 065
  28. TRIFLUCAN [Concomitant]
     Route: 065
  29. DOMPERIDONE [Concomitant]
     Route: 065
  30. ACLASTA [Concomitant]
     Route: 065
  31. CLAMOXYL (FRANCE) [Concomitant]
  32. ZECLAR [Concomitant]
  33. TAREG [Concomitant]
     Route: 065
  34. DOLIPRANE [Concomitant]

REACTIONS (5)
  - Oesophageal candidiasis [Recovered/Resolved]
  - Pulmonary embolism [Unknown]
  - Osteitis [Recovered/Resolved]
  - Rhinitis [Recovered/Resolved]
  - Pain in extremity [Recovered/Resolved]
